FAERS Safety Report 14933721 (Version 1)
Quarter: 2018Q2

REPORT INFORMATION
  Report Type: Report from Study
  Country: US (occurrence: US)
  Receive Date: 20180524
  Receipt Date: 20180524
  Transmission Date: 20180711
  Serious: Yes (Other)
  Sender: FDA-Public Use
  Company Number: PHEH2018US017376

PATIENT
  Age: 12 Year
  Sex: Female

DRUGS (1)
  1. OMNITROPE [Suspect]
     Active Substance: SOMATROPIN
     Indication: GROWTH HORMONE DEFICIENCY
     Dosage: 0.7 MG, QD
     Route: 058
     Dates: start: 20160427

REACTIONS (9)
  - Skin odour abnormal [Unknown]
  - Decreased appetite [Unknown]
  - Hypophagia [Unknown]
  - Neuralgia [Unknown]
  - Fluid retention [Recovered/Resolved]
  - Irritability [Recovered/Resolved]
  - Intentional self-injury [Unknown]
  - Swelling face [Recovered/Resolved]
  - Sinusitis [Recovered/Resolved]

NARRATIVE: CASE EVENT DATE: 20160427
